FAERS Safety Report 9631394 (Version 2)
Quarter: 2014Q1

REPORT INFORMATION
  Report Type: Spontaneous
  Country: GB (occurrence: None)
  Receive Date: 20131015
  Receipt Date: 20140129
  Transmission Date: 20141002
  Serious: Yes (Disabling)
  Sender: FDA-Public Use
  Company Number: AUR-APL-2013-08326

PATIENT
  Age: 44 Year
  Sex: Female
  Weight: 78.92 kg

DRUGS (7)
  1. MIRTAZAPINE (MIRTAZAPINE) [Suspect]
     Indication: DEPRESSION
     Dosage: 60MG (2X30MG) NIGHTLY, ORAL
     Route: 048
     Dates: start: 20120901
  2. MIRTAZAPINE (MIRTAZAPINE) [Suspect]
     Indication: CHRONIC FATIGUE SYNDROME
     Dosage: 60MG (2X30MG) NIGHTLY, ORAL
     Route: 048
     Dates: start: 20120901
  3. CELLUVISC (CARMELLOSE SODIUM) [Concomitant]
  4. NAPROXEN (NAPROXEN) [Concomitant]
  5. OMEPRAZOLE (OMEPRAZOLE) [Concomitant]
  6. PARACETAMOL (PARACETAMOL) [Concomitant]
  7. TRAMADOL (TRAMADOL) [Concomitant]

REACTIONS (9)
  - Headache [None]
  - Mood swings [None]
  - Insomnia [None]
  - Nausea [None]
  - Fatigue [None]
  - Influenza like illness [None]
  - Hyperhidrosis [None]
  - Cold sweat [None]
  - Feeling hot [None]
